FAERS Safety Report 15065054 (Version 1)
Quarter: 2018Q2

REPORT INFORMATION
  Report Type: Report from Study
  Country: US (occurrence: US)
  Receive Date: 20180626
  Receipt Date: 20180626
  Transmission Date: 20180711
  Serious: Yes (Hospitalization)
  Sender: FDA-Public Use
  Company Number: US-COLGATE PALMOLIVE COMPANY-20180601413

PATIENT

DRUGS (4)
  1. AZTREONAM LYSINE [Suspect]
     Active Substance: AZTREONAM LYSINE
     Indication: CYSTIC FIBROSIS
     Dosage: 225 MILLIGRAM, QD
  2. CHLORHEXIDINE UNSPECIFIED [Suspect]
     Active Substance: CHLORHEXIDINE
     Indication: PRODUCT USED FOR UNKNOWN INDICATION
     Route: 065
  3. CEFEPIME [Suspect]
     Active Substance: CEFEPIME HYDROCHLORIDE
     Indication: PRODUCT USED FOR UNKNOWN INDICATION
     Route: 065
  4. ORKAMBI [Suspect]
     Active Substance: IVACAFTOR\LUMACAFTOR
     Indication: PRODUCT USED FOR UNKNOWN INDICATION
     Route: 065

REACTIONS (2)
  - Pulmonary function test abnormal [Unknown]
  - Drug hypersensitivity [Unknown]
